FAERS Safety Report 4516847-7 (Version None)
Quarter: 2004Q4

REPORT INFORMATION
  Report Type: 
  Country: None (occurrence: None)
  Receive Date: 20041202
  Receipt Date: 20041123
  Transmission Date: 20050328
  Serious: Yes (Other)
  Sender: FDA-Public Use
  Company Number: GB-GLAXOSMITHKLINE-B0357910A

PATIENT
  Age: 51 Year
  Sex: Male
  Weight: 84 kg

DRUGS (3)
  1. AVANDIA [Suspect]
     Indication: DIABETES MELLITUS
     Dosage: 4MG UNKNOWN
     Route: 048
     Dates: start: 20040921, end: 20041031
  2. METFORMIN [Concomitant]
     Indication: DIABETES MELLITUS
     Dosage: 1500MG PER DAY
     Route: 065
     Dates: start: 20030623
  3. DICLOFENAC [Concomitant]
     Indication: BACK PAIN
     Dosage: 150MG PER DAY
     Route: 065
     Dates: start: 20040917, end: 20040921

REACTIONS (1)
  - DYSPNOEA [None]
